FAERS Safety Report 6940853-6 (Version None)
Quarter: 2010Q3

REPORT INFORMATION
  Report Type: 
  Country: None (occurrence: None)
  Receive Date: 20100825
  Receipt Date: 20100812
  Transmission Date: 20110219
  Serious: Yes (Hospitalization)
  Sender: FDA-Public Use
  Company Number: BR-MEDIMMUNE-MEDI-0011492

PATIENT
  Sex: Male
  Weight: 6.9 kg

DRUGS (5)
  1. SYNAGIS [Suspect]
     Indication: CARDIOMYOPATHY
     Route: 030
     Dates: start: 20100622, end: 20100622
  2. SYNAGIS [Suspect]
     Indication: BRONCHOPULMONARY DYSPLASIA
  3. CLOBAZAM [Concomitant]
     Indication: CONVULSION
     Route: 048
  4. LAMOTRIGINE [Concomitant]
     Indication: CONVULSION
     Route: 048
  5. PHENOBARBITAL [Concomitant]
     Indication: CONVULSION
     Route: 048

REACTIONS (2)
  - CONVULSION [None]
  - GENERALISED ERYTHEMA [None]
